FAERS Safety Report 25407475 (Version 1)
Quarter: 2025Q2

REPORT INFORMATION
  Report Type: Report from Study
  Country: CA (occurrence: CA)
  Receive Date: 20250606
  Receipt Date: 20250606
  Transmission Date: 20250716
  Serious: Yes (Other)
  Sender: NOVARTIS
  Company Number: CA-002147023-NVSC2024CA218881

PATIENT
  Age: 58 Year
  Sex: Female

DRUGS (5)
  1. KISQALI [Suspect]
     Active Substance: RIBOCICLIB SUCCINATE
     Indication: Breast cancer metastatic
     Dosage: 400 MG, QD
     Route: 048
     Dates: start: 20241009, end: 20241030
  2. KISQALI [Suspect]
     Active Substance: RIBOCICLIB SUCCINATE
     Dosage: 400 MG, QD
     Route: 048
     Dates: start: 20241114
  3. KISQALI [Suspect]
     Active Substance: RIBOCICLIB SUCCINATE
     Dosage: 400 MG, QD
     Route: 048
     Dates: start: 20250114
  4. KISQALI [Suspect]
     Active Substance: RIBOCICLIB SUCCINATE
     Route: 048
  5. KISQALI [Suspect]
     Active Substance: RIBOCICLIB SUCCINATE
     Dosage: 200 MG, QD
     Route: 048

REACTIONS (16)
  - Chest pain [Unknown]
  - Headache [Recovered/Resolved]
  - Chills [Recovered/Resolved]
  - Oropharyngeal pain [Recovered/Resolved]
  - Cough [Recovered/Resolved]
  - Pain [Recovered/Resolved]
  - Off label use [Unknown]
  - Blood test abnormal [Unknown]
  - Decreased immune responsiveness [Recovering/Resolving]
  - Dysphagia [Recovering/Resolving]
  - Swelling [Recovering/Resolving]
  - Insomnia [Unknown]
  - Peripheral swelling [Recovering/Resolving]
  - Fatigue [Unknown]
  - Arthralgia [Unknown]
  - Feeling abnormal [Unknown]

NARRATIVE: CASE EVENT DATE: 20241009
